FAERS Safety Report 4824450-4 (Version None)
Quarter: 2005Q4

REPORT INFORMATION
  Report Type: 
  Country: None (occurrence: None)
  Receive Date: 20051108
  Receipt Date: 20051101
  Transmission Date: 20060501
  Serious: Yes (Other)
  Sender: FDA-Public Use
  Company Number: S05-USA-04294-01

PATIENT
  Age: 48 Year
  Sex: Female

DRUGS (6)
  1. CAMPRAL [Suspect]
     Indication: ALCOHOLISM
     Dosage: 666 MG TID PO
     Route: 048
     Dates: start: 20050826
  2. SEROQUEL [Suspect]
     Dosage: 200 MG QHS
     Dates: start: 20050823
  3. KLONOPIN [Concomitant]
  4. XANAX [Concomitant]
  5. ATENOLOL [Concomitant]
  6. ZYPREXA [Concomitant]

REACTIONS (2)
  - DRUG INTERACTION [None]
  - MANIA [None]
